FAERS Safety Report 9713721 (Version 1)
Quarter: 2013Q4

REPORT INFORMATION
  Report Type: Spontaneous
  Country: ZA (occurrence: ZA)
  Receive Date: 20131126
  Receipt Date: 20131126
  Transmission Date: 20140711
  Serious: Yes (Hospitalization)
  Sender: FDA-Public Use
  Company Number: ZA-MYLANLABS-2013S1026142

PATIENT
  Age: 61 Year
  Sex: Female

DRUGS (9)
  1. PROPOFOL [Suspect]
     Indication: INDUCTION OF ANAESTHESIA
     Dosage: 140MG
     Route: 065
  2. FENTANYL [Suspect]
     Indication: INDUCTION OF ANAESTHESIA
     Dosage: 200MICROG
     Route: 065
  3. EPHEDRINE [Suspect]
     Indication: HYPOTENSION
     Dosage: REPEATED BOLUSES ADMINISTERED
     Route: 065
  4. EPINEPHRINE [Suspect]
     Indication: HYPOTENSION
     Dosage: 1ML OF 1:10000
     Route: 065
  5. VECURONIUM BROMIDE [Concomitant]
     Indication: INDUCTION OF ANAESTHESIA
     Dosage: 4MG
     Route: 065
  6. ATROPINE [Concomitant]
     Route: 065
  7. PHENYLEPHRINE [Concomitant]
     Route: 065
  8. BUPIVACAINE [Concomitant]
     Dosage: 70MG PLAIN BUPIVACAINE IN A VOLUME OF 20ML
     Route: 065
  9. SEVOFLURANE [Concomitant]
     Indication: MAINTENANCE OF ANAESTHESIA
     Route: 065

REACTIONS (4)
  - Arteriospasm coronary [Recovering/Resolving]
  - Hypotension [Recovered/Resolved]
  - Bradycardia [Recovered/Resolved]
  - Tachycardia [Recovered/Resolved]
